FAERS Safety Report 6907208-1 (Version None)
Quarter: 2010Q3

REPORT INFORMATION
  Report Type: 
  Country: None (occurrence: None)
  Receive Date: 20100804
  Receipt Date: 20100722
  Transmission Date: 20110219
  Serious: Yes (Hospitalization, Disabling)
  Sender: FDA-Public Use
  Company Number: JP-AMGEN-QUU415470

PATIENT
  Sex: Male
  Weight: 56 kg

DRUGS (11)
  1. ENBREL [Suspect]
     Indication: RHEUMATOID ARTHRITIS
     Route: 058
     Dates: start: 20090730, end: 20090924
  2. ENBREL [Suspect]
     Route: 058
     Dates: start: 20090924, end: 20100506
  3. RINDERON [Suspect]
     Indication: RHEUMATOID ARTHRITIS
     Dosage: 1.5 MG, FREQUENCY NOT SPECIFIED
     Route: 048
     Dates: start: 20081101, end: 20081201
  4. RINDERON [Suspect]
     Dosage: 1.0 MG, FREQUENCY NOT SPECIFIED
     Dates: start: 20081201, end: 20090401
  5. RINDERON [Suspect]
     Dosage: 0.75 MG, FREQUENCY UNSPECIFIED
     Dates: start: 20090401, end: 20090611
  6. RINDERON [Suspect]
     Dosage: 0.5 MG, FREQUENCY UNSPECIFIED
     Dates: start: 20090611, end: 20090730
  7. RINDERON [Suspect]
     Dosage: 0.75 MG, FREQUENCY UNSPECIFIED
     Dates: start: 20090730, end: 20091022
  8. RINDERON [Suspect]
     Dosage: 0.5 MG/0.75 MG EVERY OTHER DAY
     Dates: start: 20091022, end: 20091224
  9. RINDERON [Suspect]
     Dosage: 0.25 MG, FREQUENCY UNSPECIFIED
     Dates: start: 20091224
  10. PROGRAF [Concomitant]
     Dosage: 1MG 2 CAPSULES, FREQUENCY UNSPECIFIED
     Route: 048
     Dates: start: 20090401, end: 20091022
  11. PROGRAF [Concomitant]
     Dosage: 1 MG, FREQUENCY UNSPECIFIED
     Dates: start: 20091022

REACTIONS (5)
  - MULTI-ORGAN FAILURE [None]
  - PNEUMOCOCCAL SEPSIS [None]
  - PNEUMONIA PNEUMOCOCCAL [None]
  - SEPTIC SHOCK [None]
  - STAPHYLOCOCCAL INFECTION [None]
